FAERS Safety Report 8614627 (Version 3)
Quarter: 2013Q2

REPORT INFORMATION
  Report Type: Spontaneous
  Country: JP (occurrence: JP)
  Receive Date: 20120614
  Receipt Date: 20130620
  Transmission Date: 20140414
  Serious: Yes (Death, Other)
  Sender: FDA-Public Use
  Company Number: JP-SANOFI-AVENTIS-2012SA041252

PATIENT
  Age: 83 Year
  Sex: Female
  Weight: 43 kg

DRUGS (41)
  1. CLEXANE [Suspect]
     Indication: FEMORAL NECK FRACTURE
     Route: 058
     Dates: start: 20120508, end: 20120519
  2. CLEXANE [Suspect]
     Indication: THROMBOSIS PROPHYLAXIS
     Route: 058
     Dates: start: 20120508, end: 20120519
  3. RISPERDAL [Concomitant]
     Indication: SCHIZOPHRENIA
     Dosage: STRENGTH: 1 MG?AFTER DINNER
     Route: 048
  4. S. ADCHNON [Concomitant]
     Indication: HAEMOSTASIS
     Dosage: STRENGTH 30 MG?AFTER BREAKFAST AND DINNER
     Route: 048
     Dates: start: 20120514
  5. LASIX [Concomitant]
     Indication: HYPERTENSION
     Dosage: STRENGTH: 20 MG?0.5 AMPULE/DAY
     Route: 041
     Dates: start: 20120506, end: 20120506
  6. LASIX [Concomitant]
     Indication: HYPERTENSION
     Dosage: STRENGTH: 20 MG?0.5 AMPULE/DAY
     Route: 042
     Dates: start: 20120508, end: 20120508
  7. LASIX [Concomitant]
     Indication: HYPERTENSION
     Dosage: STRENGTH: 20 MG?0.5 AMPULE/DAY
     Route: 042
     Dates: start: 20120516, end: 20120516
  8. LASIX [Concomitant]
     Indication: HYPERTENSION
     Route: 048
     Dates: start: 20120516, end: 20120520
  9. ALDACTONE-A [Concomitant]
     Indication: HYPERTENSION
     Dosage: STRENGTH: 25 MG?AFTER DINNER
     Route: 048
     Dates: start: 20120515
  10. ZOSYN [Concomitant]
     Indication: INFECTION
     Dosage: STRENGTH: 2.25 G?2 VIALS/DAY
     Route: 041
     Dates: start: 20120505, end: 20120506
  11. ZOSYN [Concomitant]
     Indication: INFECTION
     Dosage: STRENGTH: 2.25 G?2 VIALS/DAY
     Route: 041
     Dates: start: 20120511, end: 20120521
  12. GASTER [Concomitant]
     Indication: PEPTIC ULCER
     Dosage: STRENGTH: 20 MG?AFTER BREAKFAST AND DINNER
     Route: 048
     Dates: start: 20120506, end: 20120517
  13. GASTER [Concomitant]
     Indication: PEPTIC ULCER
     Dosage: STRENGTH: 20 MG?AFTER BREAKFAST AND DINNER
     Route: 048
     Dates: start: 20120519, end: 20120523
  14. SELBEX [Concomitant]
     Indication: GASTRITIS
     Dosage: FINE GRANULES?STRENGTH: 10 %?AFTER BREAKFAST AND DINNER
     Route: 048
     Dates: start: 20120502, end: 20120517
  15. SELBEX [Concomitant]
     Indication: GASTRITIS
     Dosage: FINE GRANULES?STRENGTH: 10 %?AFTER BREAKFAST AND DINNER
     Route: 048
     Dates: start: 20120519, end: 20120524
  16. FERROMIA [Concomitant]
     Indication: ANAEMIA
     Dosage: STRENGTH: 50 MG?AFTER DINNER
     Route: 048
     Dates: start: 20120514
  17. ADSORBIN [Concomitant]
     Indication: DIARRHOEA
     Dosage: AFTER BREAKFAST
     Route: 048
     Dates: end: 20120508
  18. ADSORBIN [Concomitant]
     Indication: DIARRHOEA
     Dosage: AFTER BREAKFAST AND DINNER
     Route: 048
     Dates: start: 20120509, end: 20120515
  19. VOLTAREN [Concomitant]
     Route: 054
     Dates: start: 20120504, end: 20120504
  20. GENTACIN [Concomitant]
     Route: 062
     Dates: start: 20120504, end: 20120504
  21. GENTACIN [Concomitant]
     Dosage: STRENGTH: 0.1 %
     Route: 062
     Dates: start: 20120517, end: 20120517
  22. CRAVIT [Concomitant]
     Dosage: STRENGTH: 250 MG
     Dates: end: 20120501
  23. PANTOL [Concomitant]
     Dosage: STRENGTH: 250 MG?2 AMPULE/DAY
     Route: 041
     Dates: start: 20120507, end: 20120508
  24. PANTOL [Concomitant]
     Dosage: STRENGTH: 250 MG?1 AMPULE/DAY
     Route: 041
     Dates: start: 20120509, end: 20120509
  25. C-PARA [Concomitant]
     Dosage: STRENGTH: 2 ML?2 AMPULE/DAY
     Route: 041
     Dates: start: 20120507, end: 20120508
  26. C-PARA [Concomitant]
     Dosage: STRENGTH: 2 ML?1 AMPULE/DAY
     Route: 041
     Dates: start: 20120509, end: 20120509
  27. KN SOL. 3B [Concomitant]
     Dosage: STRENGTH: 500 ML?1 BAG/DAY
     Route: 041
     Dates: start: 20120507, end: 20120507
  28. ELECTROLYTE SOLUTIONS [Concomitant]
     Dosage: STRENGTH: 500 ML?2 KITS/DAY
     Route: 041
     Dates: start: 20120507, end: 20120508
  29. ELECTROLYTE SOLUTIONS [Concomitant]
     Dosage: STRENGTH: 500 ML?1 KIT/DAY
     Route: 041
     Dates: start: 20120509, end: 20120509
  30. ROCEPHIN [Concomitant]
     Dosage: STRENGTH: 1 G?2 VIALS/DAY
     Route: 041
     Dates: start: 20120507, end: 20120510
  31. AMIKACIN SULFATE [Concomitant]
     Dosage: STRENGTH: 200 MG?1 AMPULE/DAY
     Route: 030
     Dates: start: 20120502, end: 20120506
  32. VEEN D [Concomitant]
     Dosage: STRENGTH: 500 ML?1 BOTTLE/DAY
     Route: 041
     Dates: start: 20120505, end: 20120506
  33. VEEN D [Concomitant]
     Dosage: STRENGTH: 500 ML?2 BOTTLES/DAY
     Route: 041
     Dates: start: 20120507, end: 20120507
  34. OTSUKA MV [Concomitant]
     Dosage: STRENGTH: 100 ML?NORMAL SALINE 2-PORT?2 KITS/DAY
     Route: 041
     Dates: start: 20120505, end: 20120521
  35. FLAGYL [Concomitant]
     Dosage: STRENGTH: 250 MG?AFTER EACH MEAL AND BEFORE BEDTIME
     Route: 048
     Dates: start: 20120519
  36. GLYCERIN [Concomitant]
     Dosage: 1 TUBE/DAY
     Route: 054
     Dates: start: 20120518, end: 20120518
  37. LAXOBERON [Concomitant]
     Dosage: STRENGTH: 0.75%
     Route: 048
     Dates: start: 20120518, end: 20120518
  38. MIYA-BM [Concomitant]
     Indication: FLATULENCE
     Dosage: AFTER BREAKFAST AND DINNER
     Route: 048
     Dates: start: 20120502, end: 20120517
  39. MIYA-BM [Concomitant]
     Indication: FLATULENCE
     Dosage: AFTER BREAKFAST AND DINNER
     Route: 048
     Dates: start: 20120519
  40. RED BLOOD CELLS, LEUCOCYTE DEPLETED [Concomitant]
     Dosage: 1 BAG/DAY
     Dates: start: 20120507, end: 20120507
  41. ADONA [Concomitant]
     Dosage: 2 AMPOULES/DAY?STRENGTH: 50MG 10 ML
     Route: 041
     Dates: start: 20120507, end: 20120507

REACTIONS (3)
  - Renal impairment [Fatal]
  - Wound haemorrhage [Recovering/Resolving]
  - Mouth haemorrhage [Recovering/Resolving]
